FAERS Safety Report 9647553 (Version 1)
Quarter: 2013Q4

REPORT INFORMATION
  Report Type: Spontaneous
  Country: US (occurrence: US)
  Receive Date: 20131028
  Receipt Date: 20131028
  Transmission Date: 20140711
  Serious: No
  Sender: FDA-Public Use
  Company Number: US-BIOGENIDEC-2013BI099060

PATIENT
  Sex: Female

DRUGS (1)
  1. AVONEX [Suspect]
     Indication: MULTIPLE SCLEROSIS
     Route: 030
     Dates: start: 20070804, end: 20131008

REACTIONS (7)
  - Central nervous system lesion [Unknown]
  - Feeling cold [Unknown]
  - Brain scan abnormal [Unknown]
  - Influenza like illness [Unknown]
  - Bone pain [Unknown]
  - Chills [Unknown]
  - Myalgia [Unknown]
